FAERS Safety Report 11512194 (Version 1)
Quarter: 2015Q3

REPORT INFORMATION
  Report Type: Spontaneous
  Country: PL (occurrence: PL)
  Receive Date: 20150916
  Receipt Date: 20150916
  Transmission Date: 20151125
  Serious: No
  Sender: FDA-Public Use
  Company Number: PL-ACTELION-A-CH2015-123850

PATIENT
  Age: 31 Year
  Sex: Male

DRUGS (1)
  1. STAYVEER [Suspect]
     Active Substance: BOSENTAN
     Indication: PULMONARY ARTERIAL HYPERTENSION
     Dosage: 125 MG, BID
     Route: 048

REACTIONS (2)
  - Pregnancy of partner [Recovered/Resolved]
  - Normal newborn [Unknown]
